FAERS Safety Report 4285748-4 (Version None)
Quarter: 2004Q1

REPORT INFORMATION
  Report Type: 
  Country: None (occurrence: None)
  Receive Date: 20040202
  Receipt Date: 20040123
  Transmission Date: 20041129
  Serious: Yes (Death)
  Sender: FDA-Public Use
  Company Number: 200410556US

PATIENT
  Age: 11 Year
  Sex: Male

DRUGS (4)
  1. LANTUS [Suspect]
     Indication: DIABETES MELLITUS INSULIN-DEPENDENT
     Dosage: 15 U HS SC
     Route: 058
     Dates: start: 20011222, end: 20011229
  2. ISOPHANE INSULIN [Concomitant]
  3. HUMALOG [Concomitant]
  4. .. [Concomitant]

REACTIONS (1)
  - DEATH [None]
